FAERS Safety Report 7897061-4 (Version None)
Quarter: 2011Q4

REPORT INFORMATION
  Report Type: 
  Country: None (occurrence: None)
  Receive Date: 20111104
  Receipt Date: 20111104
  Transmission Date: 20120403
  Serious: Yes (Other)
  Sender: FDA-Public Use
  Company Number: None

PATIENT
  Age: 86 Year
  Sex: Male
  Weight: 83.4619 kg

DRUGS (5)
  1. LISINOPRIL [Concomitant]
  2. PRADAXA [Suspect]
     Indication: ATRIAL FIBRILLATION
     Dosage: 150 MG 2X/DAY ORAL
     Route: 048
     Dates: start: 20110101, end: 20110901
  3. CARDURA [Concomitant]
  4. HYDROCHOOROTHOROZIDE [Concomitant]
  5. QUESTRAN [Concomitant]

REACTIONS (4)
  - NECK PAIN [None]
  - GAIT DISTURBANCE [None]
  - TENDONITIS [None]
  - LETHARGY [None]
